FAERS Safety Report 25219585 (Version 10)
Quarter: 2025Q3

REPORT INFORMATION
  Report Type: Spontaneous
  Country: CO (occurrence: CO)
  Receive Date: 20250421
  Receipt Date: 20250721
  Transmission Date: 20251021
  Serious: No
  Sender: PFIZER
  Company Number: CO-PFIZER INC-202500077171

PATIENT
  Age: 13 Year
  Sex: Male

DRUGS (1)
  1. GENOTROPIN [Suspect]
     Active Substance: SOMATROPIN
     Dosage: 1.4 MG, DAILY

REACTIONS (2)
  - Wrong technique in device usage process [Unknown]
  - Device leakage [Unknown]

NARRATIVE: CASE EVENT DATE: 20250301
